FAERS Safety Report 12906552 (Version 1)
Quarter: 2016Q4

REPORT INFORMATION
  Report Type: Spontaneous
  Country: ES (occurrence: ES)
  Receive Date: 20161103
  Receipt Date: 20161103
  Transmission Date: 20170207
  Serious: Yes (Hospitalization)
  Sender: FDA-Public Use
  Company Number: ES-JNJFOC-20161100126

PATIENT
  Age: 78 Year
  Sex: Female

DRUGS (8)
  1. LOBIVON [Concomitant]
     Active Substance: NEBIVOLOL HYDROCHLORIDE
     Indication: HYPERTENSION
     Dosage: FROM 700 DAYS
     Route: 048
     Dates: start: 20130522
  2. DUROGESIC [Suspect]
     Active Substance: FENTANYL
     Indication: PAIN
     Dosage: 5 PATCHES
     Route: 062
     Dates: start: 20150327, end: 20150421
  3. PROLIA [Concomitant]
     Active Substance: DENOSUMAB
     Indication: OSTEOPOROSIS
     Dosage: FOR 304 DAYS
     Route: 058
     Dates: start: 20140622, end: 20150322
  4. OMEPRAZOLE. [Concomitant]
     Active Substance: OMEPRAZOLE
     Indication: PROPHYLAXIS AGAINST GASTROINTESTINAL ULCER
     Dosage: FROM 5 YEARS
     Route: 048
     Dates: start: 2010
  5. HEMOVAS [Concomitant]
     Indication: PERIPHERAL VENOUS DISEASE
     Dosage: FOR 639 DAYS
     Route: 048
     Dates: start: 20130722
  6. NOLOTIL [Concomitant]
     Active Substance: METAMIZOLE
     Indication: PAIN
     Dosage: FROM 5 YEARS
     Route: 048
     Dates: start: 2010
  7. BROMAZEPAM [Suspect]
     Active Substance: BROMAZEPAM
     Indication: PRODUCT USED FOR UNKNOWN INDICATION
     Route: 048
     Dates: start: 20150327, end: 20150421
  8. CARDURAN NEO [Concomitant]
     Active Substance: DOXAZOSIN MESYLATE
     Indication: HYPERTENSION
     Dosage: FROM 888 DAYS, INTERVAL-DAYS
     Route: 048
     Dates: start: 20121115

REACTIONS (2)
  - Pancreatitis acute [Recovered/Resolved]
  - Lacunar infarction [Unknown]

NARRATIVE: CASE EVENT DATE: 201504
